FAERS Safety Report 10543821 (Version 1)
Quarter: 2014Q4

REPORT INFORMATION
  Report Type: Spontaneous
  Country: CN (occurrence: CN)
  Receive Date: 20141027
  Receipt Date: 20141027
  Transmission Date: 20150529
  Serious: Yes (Disabling, Other)
  Sender: FDA-Public Use
  Company Number: CN-MYLANLABS-2014M1008326

PATIENT

DRUGS (2)
  1. CISPLATIN. [Suspect]
     Active Substance: CISPLATIN
     Indication: NASOPHARYNGEAL CANCER STAGE III
     Dosage: 75 MG/M2
     Route: 065
  2. PACLITAXEL. [Suspect]
     Active Substance: PACLITAXEL
     Indication: NASOPHARYNGEAL CANCER STAGE III
     Dosage: 150 MG/M2
     Route: 065

REACTIONS (4)
  - Neutropenia [Recovered/Resolved]
  - Vomiting [Unknown]
  - Ocular toxicity [Not Recovered/Not Resolved]
  - Nausea [Unknown]
